FAERS Safety Report 17394312 (Version 2)
Quarter: 2020Q1

REPORT INFORMATION
  Report Type: Spontaneous
  Country: DE (occurrence: DE)
  Receive Date: 20200210
  Receipt Date: 20200303
  Transmission Date: 20200409
  Serious: Yes (Other)
  Sender: FDA-Public Use
  Company Number: DE-ROCHE-2536917

PATIENT
  Age: 50 Year
  Sex: Male

DRUGS (5)
  1. RITUXIMAB. [Suspect]
     Active Substance: RITUXIMAB
     Indication: CHRONIC LYMPHOCYTIC LEUKAEMIA
     Dosage: (STRENGHT: 375 MG/M2) (CYCLE 1) (NO DRUG ON DAY 1-47)
     Route: 065
     Dates: start: 201807, end: 201811
  2. NIVOLUMAB [Suspect]
     Active Substance: NIVOLUMAB
     Indication: MALIGNANT MELANOMA
     Dosage: 480/240 MG (3X )
     Route: 065
     Dates: start: 201811, end: 20190123
  3. CYCLOPHOSPHAMIDE. [Suspect]
     Active Substance: CYCLOPHOSPHAMIDE
     Indication: CHRONIC LYMPHOCYTIC LEUKAEMIA
     Dosage: (NO DRUG ON DAY 4-27 AND DAY 0)
     Route: 065
     Dates: start: 201807, end: 201811
  4. RITUXIMAB. [Suspect]
     Active Substance: RITUXIMAB
     Dosage: (STRENGHT: 500 MG/M2) (CYCLE 2) (NO DRUG ON DAY 1-47)
     Route: 065
  5. FLUDARABINE PHOSPHATE. [Suspect]
     Active Substance: FLUDARABINE PHOSPHATE
     Indication: CHRONIC LYMPHOCYTIC LEUKAEMIA
     Dosage: (NO DRUG ON DAY 4-27 AND DAY 0)
     Route: 065
     Dates: start: 201807, end: 201811

REACTIONS (5)
  - Metastases to meninges [Unknown]
  - Metastases to lymph nodes [Unknown]
  - Malignant neoplasm progression [Unknown]
  - Metastases to bone [Unknown]
  - Malignant melanoma [Unknown]

NARRATIVE: CASE EVENT DATE: 201901
